FAERS Safety Report 18703616 (Version 1)
Quarter: 2021Q1

REPORT INFORMATION
  Report Type: Spontaneous
  Country: FR (occurrence: FR)
  Receive Date: 20210105
  Receipt Date: 20210105
  Transmission Date: 20210419
  Serious: Yes (Hospitalization)
  Sender: FDA-Public Use
  Company Number: FR-ELI_LILLY_AND_COMPANY-FR202012011715

PATIENT
  Age: 52 Year
  Sex: Male

DRUGS (7)
  1. DEPAKINE CRONO [VALPROATE SODIUM;VALPROIC ACI [Interacting]
     Active Substance: VALPROIC ACID
     Indication: SCHIZOPHRENIA
     Dosage: 1 G, DAILY
     Route: 048
     Dates: start: 20201117, end: 20201119
  2. NOZINAN [LEVOMEPROMAZINE HYDROCHLORIDE] [Interacting]
     Active Substance: LEVOMEPROMAZINE HYDROCHLORIDE
     Indication: SCHIZOPHRENIA
     Dosage: 180 MG, DAILY
     Route: 048
     Dates: start: 20201111, end: 20201119
  3. MOVICOL [Concomitant]
     Active Substance: POLYETHYLENE GLYCOL 3350\POTASSIUM CHLORIDE\SODIUM BICARBONATE\SODIUM CHLORIDE
     Indication: PROPHYLAXIS
     Dosage: 6 DOSAGE FORM, DAILY
     Route: 048
  4. VALIUM [Interacting]
     Active Substance: DIAZEPAM
     Indication: SCHIZOPHRENIA
     Dosage: 90 DROPS (DROP 1 172 ML) DAILY
     Route: 048
     Dates: start: 20201111, end: 20201119
  5. ARIXTRA [Concomitant]
     Active Substance: FONDAPARINUX SODIUM
     Indication: PRODUCT USED FOR UNKNOWN INDICATION
     Dosage: 1 DOSAGE FORM, DAILY
     Route: 058
     Dates: start: 20201112, end: 20201119
  6. OLANZAPINE. [Suspect]
     Active Substance: OLANZAPINE
     Indication: SCHIZOPHRENIA
     Dosage: 30 MG, DAILY
     Route: 048
     Dates: end: 20201119
  7. ZOPICLONE [Interacting]
     Active Substance: ZOPICLONE
     Indication: SLEEP DISORDER
     Dosage: 7.5 MG, DAILY
     Route: 048
     Dates: start: 20201109, end: 20201119

REACTIONS (4)
  - Pneumonia aspiration [Recovered/Resolved]
  - Altered state of consciousness [Recovered/Resolved]
  - Dysphagia [Not Recovered/Not Resolved]
  - Drug interaction [Unknown]

NARRATIVE: CASE EVENT DATE: 20201119
